FAERS Safety Report 10016687 (Version 1)
Quarter: 2014Q1

REPORT INFORMATION
  Report Type: Spontaneous
  Country: US (occurrence: US)
  Receive Date: 20140317
  Receipt Date: 20140317
  Transmission Date: 20141002
  Serious: Yes (Hospitalization, Other)
  Sender: FDA-Public Use
  Company Number: US-AMGEN-USASP2014018348

PATIENT
  Age: 33 Year
  Sex: Male

DRUGS (8)
  1. XGEVA [Suspect]
     Indication: METASTASES TO BONE
     Dosage: UNK
     Route: 065
  2. CRIZOTINIB [Concomitant]
  3. OXYCONTIN [Concomitant]
  4. PHENERGAN                          /00033001/ [Concomitant]
  5. TYLENOL                            /00020001/ [Concomitant]
  6. MIRALAX                            /00754501/ [Concomitant]
  7. DEXAMETHASONE [Concomitant]
  8. LOVENOX [Concomitant]
     Indication: PROPHYLAXIS

REACTIONS (2)
  - Cerebrovascular accident [Unknown]
  - Thrombosis [Unknown]
